FAERS Safety Report 24138508 (Version 1)
Quarter: 2024Q3

REPORT INFORMATION
  Report Type: Spontaneous
  Country: IN (occurrence: IN)
  Receive Date: 20240725
  Receipt Date: 20240725
  Transmission Date: 20241016
  Serious: Yes (Other)
  Sender: NOVARTIS
  Company Number: IN-002147023-NVSC2024IN149854

PATIENT
  Age: 36 Year
  Sex: Male

DRUGS (8)
  1. CLONAZEPAM [Suspect]
     Active Substance: CLONAZEPAM
     Indication: Mania
     Dosage: 2 MG
     Route: 065
  2. CARBAMAZEPINE [Suspect]
     Active Substance: CARBAMAZEPINE
     Indication: Seizure
     Dosage: 400 MG
     Route: 065
  3. VALPROATE [Suspect]
     Active Substance: VALPROIC ACID
     Indication: Mania
     Dosage: 1500 MG
     Route: 065
  4. PHENYTOIN [Suspect]
     Active Substance: PHENYTOIN
     Indication: Seizure
     Dosage: 300 MG
     Route: 065
  5. OLANZAPINE [Concomitant]
     Active Substance: OLANZAPINE
     Indication: Mania
     Dosage: 15 MG
     Route: 065
  6. TRIHEXYPHENIDYL [Concomitant]
     Active Substance: TRIHEXYPHENIDYL
     Indication: Mania
     Dosage: 6 MG
     Route: 065
  7. LEVETIRACETAM [Concomitant]
     Active Substance: LEVETIRACETAM
     Indication: Mania
     Dosage: 1000 MG
     Route: 065
  8. CLOBAZAM [Concomitant]
     Active Substance: CLOBAZAM
     Indication: Seizure
     Dosage: 10 MG
     Route: 065

REACTIONS (12)
  - Generalised tonic-clonic seizure [Unknown]
  - Withdrawal catatonia [Recovering/Resolving]
  - Staring [Recovering/Resolving]
  - Mutism [Recovering/Resolving]
  - Posturing [Recovering/Resolving]
  - Irritability [Unknown]
  - Vomiting [Unknown]
  - Ataxia [Unknown]
  - Hyponatraemia [Unknown]
  - Hyperammonaemia [Unknown]
  - Toxicity to various agents [Unknown]
  - Product use in unapproved indication [Unknown]
